FAERS Safety Report 8322003-7 (Version None)
Quarter: 2012Q2

REPORT INFORMATION
  Report Type: 
  Country: None (occurrence: None)
  Receive Date: 20120426
  Receipt Date: 20120411
  Transmission Date: 20120825
  Serious: Yes (Life-Threatening)
  Sender: FDA-Public Use
  Company Number: 1255569

PATIENT
  Age: 34 Year
  Sex: Male
  Weight: 181 kg

DRUGS (4)
  1. PRECEDEX [Suspect]
     Indication: OBESITY SURGERY
     Dosage: 100MCG, ONCE, INTRAVENOUS (NOT OTHERWISE SPECIFIED)
     Route: 042
     Dates: start: 20111115, end: 20111115
  2. CELEBREX [Concomitant]
  3. (REMIFENTANIL) [Concomitant]
  4. FENTANYL CITRATE [Concomitant]

REACTIONS (3)
  - CARDIAC ARREST [None]
  - PROCEDURAL COMPLICATION [None]
  - BLOOD PRESSURE DECREASED [None]
